FAERS Safety Report 18409745 (Version 1)
Quarter: 2020Q4

REPORT INFORMATION
  Report Type: Spontaneous
  Country: US (occurrence: US)
  Receive Date: 20201021
  Receipt Date: 20201021
  Transmission Date: 20210114
  Serious: Yes (Other)
  Sender: FDA-Public Use
  Company Number: US-MYLANLABS-2020M1088143

PATIENT
  Age: 33 Year
  Sex: Female

DRUGS (5)
  1. VENETOCLAX. [Suspect]
     Active Substance: VENETOCLAX
     Dosage: 200 MILLIGRAM(DOSE ESCALATED ON DAY 2
     Route: 065
  2. VENETOCLAX. [Suspect]
     Active Substance: VENETOCLAX
     Dosage: 400 MILLIGRAM, QD(AFTER DOSE ESCALATION
     Route: 065
  3. AZACITIDINE. [Suspect]
     Active Substance: AZACITIDINE
     Indication: ACUTE MYELOID LEUKAEMIA
     Dosage: 37.5 MILLIGRAM/SQ. METER(AT A 50% REDUCED DOSE ON DAYS 1-5
     Route: 042
  4. AZACITIDINE. [Suspect]
     Active Substance: AZACITIDINE
     Indication: PROPHYLAXIS
  5. VENETOCLAX. [Suspect]
     Active Substance: VENETOCLAX
     Indication: ACUTE MYELOID LEUKAEMIA
     Dosage: 100 MILLIGRAM(ON DAY 1, 100 MG/DAY1; 200 MG/DAY 2 + 400 MG /DAY3
     Route: 065

REACTIONS (3)
  - Cytopenia [Recovering/Resolving]
  - Pulmonary embolism [Unknown]
  - Off label use [Unknown]
